FAERS Safety Report 16831860 (Version 1)
Quarter: 2019Q3

REPORT INFORMATION
  Report Type: Spontaneous
  Country: US (occurrence: US)
  Receive Date: 20190730
  Receipt Date: 20190730
  Transmission Date: 20191005
  Serious: Yes (Hospitalization)
  Sender: FDA-Public Use
  Company Number: None

PATIENT
  Sex: Female

DRUGS (19)
  1. BENLYSTA [Suspect]
     Active Substance: BELIMUMAB
     Indication: SYSTEMIC LUPUS ERYTHEMATOSUS
     Route: 058
     Dates: start: 201710
  2. LYRICA [Concomitant]
     Active Substance: PREGABALIN
  3. MELOXICAM. [Concomitant]
     Active Substance: MELOXICAM
  4. AMLODIPINE [Concomitant]
     Active Substance: AMLODIPINE BESYLATE
  5. CLOBETASOL [Concomitant]
     Active Substance: CLOBETASOL
  6. MONTELUKAST [Concomitant]
     Active Substance: MONTELUKAST SODIUM
  7. PRAMIPEXOLE. [Concomitant]
     Active Substance: PRAMIPEXOLE
  8. ATORVASTATIN [Concomitant]
     Active Substance: ATORVASTATIN
  9. DULOXETINE. [Concomitant]
     Active Substance: DULOXETINE
  10. QVAR [Concomitant]
     Active Substance: BECLOMETHASONE DIPROPIONATE
  11. METFORMIN [Concomitant]
     Active Substance: METFORMIN HYDROCHLORIDE
  12. CARVIDILOR [Concomitant]
  13. NYSTATIN. [Concomitant]
     Active Substance: NYSTATIN
  14. PRAMIPEXOLE. [Concomitant]
     Active Substance: PRAMIPEXOLE
  15. SYMBICORT [Concomitant]
     Active Substance: BUDESONIDE\FORMOTEROL FUMARATE DIHYDRATE
  16. MEDIAFINIL [Concomitant]
  17. ASPIRIN. [Concomitant]
     Active Substance: ASPIRIN
  18. ALBUTEROL. [Concomitant]
     Active Substance: ALBUTEROL
  19. BUPROPION. [Concomitant]
     Active Substance: BUPROPION

REACTIONS (2)
  - Hip arthroplasty [None]
  - Post procedural sepsis [None]
